FAERS Safety Report 9264196 (Version 2)
Quarter: 2013Q4

REPORT INFORMATION
  Report Type: Report from Study
  Country: ES (occurrence: ES)
  Receive Date: 20130430
  Receipt Date: 20131213
  Transmission Date: 20140711
  Serious: Yes (Other)
  Sender: FDA-Public Use
  Company Number: ES-BIOGENIDEC-2013BI036690

PATIENT
  Age: 47 Year
  Sex: Female
  Weight: 72 kg

DRUGS (7)
  1. BG00012 [Suspect]
     Indication: MULTIPLE SCLEROSIS
     Route: 048
     Dates: start: 20100908
  2. RUSCUS ACULEATUS [Concomitant]
     Indication: ROSACEA
     Dates: start: 200803
  3. IBUPROFEN [Concomitant]
     Indication: MIGRAINE
     Dates: start: 1998
  4. IBUPROFEN [Concomitant]
     Indication: DYSMENORRHOEA
     Dates: start: 1998
  5. OMEPRAZOL [Concomitant]
     Indication: HIATUS HERNIA
     Dates: start: 2003
  6. PRACETAMOL [Concomitant]
     Indication: TENSION HEADACHE
     Dates: start: 1998
  7. METRONIDAZOLE [Concomitant]
     Indication: ROSACEA
     Dates: start: 20121210

REACTIONS (1)
  - Breast cancer [Not Recovered/Not Resolved]
